FAERS Safety Report 7170578-6 (Version None)
Quarter: 2010Q4

REPORT INFORMATION
  Report Type: 
  Country: None (occurrence: None)
  Receive Date: 20101217
  Receipt Date: 20101207
  Transmission Date: 20110411
  Serious: Yes (Other)
  Sender: FDA-Public Use
  Company Number: US-SANOFI-AVENTIS-2010SA073914

PATIENT
  Age: 70 Year
  Sex: Female
  Weight: 135 kg

DRUGS (3)
  1. MULTAQ [Suspect]
     Indication: ATRIAL FIBRILLATION
     Route: 048
     Dates: start: 20100401
  2. ALTACE [Concomitant]
  3. LIPITOR [Concomitant]

REACTIONS (7)
  - ACCIDENTAL OVERDOSE [None]
  - ATRIAL FIBRILLATION [None]
  - CONDITION AGGRAVATED [None]
  - HEADACHE [None]
  - NOCTURNAL DYSPNOEA [None]
  - SLEEP APNOEA SYNDROME [None]
  - TOOTHACHE [None]
